FAERS Safety Report 9382040 (Version 1)
Quarter: 2013Q3

REPORT INFORMATION
  Report Type: Spontaneous
  Country: US (occurrence: US)
  Receive Date: 20130703
  Receipt Date: 20130703
  Transmission Date: 20140515
  Serious: Yes (Disabling, Other)
  Sender: FDA-Public Use
  Company Number: US-ENDO PHARMACEUTICALS INC.-PRED20130037

PATIENT
  Age: 87 Year
  Sex: Male

DRUGS (4)
  1. PREDNISONE TABLETS 20MG [Suspect]
     Indication: EYE INFLAMMATION
     Route: 048
     Dates: start: 201305, end: 201306
  2. PREDNISONE TABLETS 20MG [Suspect]
     Dosage: 50MG
     Route: 048
     Dates: start: 201306, end: 201306
  3. PREDNISONE TABLETS 20MG [Suspect]
     Dosage: 30MG
     Route: 048
     Dates: start: 201306, end: 201306
  4. PREDNISONE TABLETS 20MG [Suspect]
     Route: 048
     Dates: start: 201306

REACTIONS (11)
  - Walking disability [Not Recovered/Not Resolved]
  - Gait disturbance [Unknown]
  - Hallucination [Unknown]
  - Dizziness [Unknown]
  - Diarrhoea [Unknown]
  - Vomiting [Unknown]
  - Nausea [Unknown]
  - Disturbance in attention [Unknown]
  - Gastric disorder [None]
  - Balance disorder [None]
  - Limb injury [None]
